FAERS Safety Report 10692445 (Version 1)
Quarter: 2015Q1

REPORT INFORMATION
  Report Type: Spontaneous
  Country: US (occurrence: None)
  Receive Date: 20150105
  Receipt Date: 20150105
  Transmission Date: 20150720
  Serious: No
  Sender: FDA-Public Use
  Company Number: None

PATIENT
  Age: 58 Year
  Sex: Male
  Weight: 79.9 kg

DRUGS (6)
  1. TRAZODONE [Suspect]
     Active Substance: TRAZODONE HYDROCHLORIDE
     Dosage: 200 MG (2 PILLS), QHS/BEDTIME, ORAL
     Route: 048
     Dates: start: 20131231, end: 20140101
  2. SOMA [Concomitant]
     Active Substance: CARISOPRODOL
  3. FAMOTIDINE. [Concomitant]
     Active Substance: FAMOTIDINE
  4. ATIVAN [Concomitant]
     Active Substance: LORAZEPAM
  5. NEURONTIN [Concomitant]
     Active Substance: GABAPENTIN
  6. WELLBUTRIN XL [Concomitant]
     Active Substance: BUPROPION HYDROCHLORIDE

REACTIONS (2)
  - Muscle spasms [None]
  - Insomnia [None]

NARRATIVE: CASE EVENT DATE: 20140102
